FAERS Safety Report 10780248 (Version 11)
Quarter: 2021Q4

REPORT INFORMATION
  Report Type: Spontaneous
  Country: US (occurrence: US)
  Receive Date: 20150210
  Receipt Date: 20211021
  Transmission Date: 20220303
  Serious: No
  Sender: FDA-Public Use
  Company Number: US-PFIZER INC-2015051823

PATIENT
  Age: 62 Year
  Sex: Female
  Weight: 56.7 kg

DRUGS (5)
  1. PREMARIN [Suspect]
     Active Substance: ESTROGENS, CONJUGATED
     Indication: Oophorectomy
     Dosage: 1.25 MG, DAILY
     Route: 048
     Dates: start: 1987
  2. PREMARIN [Suspect]
     Active Substance: ESTROGENS, CONJUGATED
     Dosage: 1.25 G, 1X/DAY
  3. PREMARIN [Suspect]
     Active Substance: ESTROGENS, CONJUGATED
     Dosage: ONCE A DAY FOR 5 DAYS
  4. PREMARIN [Suspect]
     Active Substance: ESTROGENS, CONJUGATED
     Dosage: ONCE A DAY FOR 7 DAYS
  5. PREMARIN [Suspect]
     Active Substance: ESTROGENS, CONJUGATED
     Dosage: 1.25 G,  ONCE DAILY (QD)

REACTIONS (17)
  - Ear pain [Unknown]
  - Hypoacusis [Recovering/Resolving]
  - Oropharyngeal pain [Recovering/Resolving]
  - Diarrhoea [Recovering/Resolving]
  - Illness [Unknown]
  - Dysstasia [Unknown]
  - Ear infection [Recovering/Resolving]
  - Influenza [Recovering/Resolving]
  - Sinusitis [Unknown]
  - Aggression [Unknown]
  - Product prescribing error [Unknown]
  - Expired product administered [Unknown]
  - Bone disorder [Unknown]
  - Therapeutic product effect incomplete [Unknown]
  - Off label use [Unknown]
  - Product use in unapproved indication [Unknown]
  - Off label use [Unknown]

NARRATIVE: CASE EVENT DATE: 20141225
